FAERS Safety Report 19679244 (Version 1)
Quarter: 2021Q3

REPORT INFORMATION
  Report Type: Report from Study
  Country: FR (occurrence: FR)
  Receive Date: 20210809
  Receipt Date: 20210809
  Transmission Date: 20211014
  Serious: Yes (Hospitalization)
  Sender: FDA-Public Use
  Company Number: FR-BRISTOL-MYERS SQUIBB COMPANY-BMS-2021-067450

PATIENT
  Age: 63 Year
  Sex: Female

DRUGS (7)
  1. NIVOLUMAB [Suspect]
     Active Substance: NIVOLUMAB
     Indication: METASTATIC MALIGNANT MELANOMA
     Dosage: 480 MILLIGRAM
     Route: 065
     Dates: start: 20190805, end: 20210517
  2. NIVOLUMAB [Suspect]
     Active Substance: NIVOLUMAB
     Dosage: 480 MILLIGRAM, Q4WK
     Route: 065
     Dates: start: 20210517
  3. ENCORAFENIB [Suspect]
     Active Substance: ENCORAFENIB
     Indication: METASTATIC MALIGNANT MELANOMA
     Dosage: 450 MILLIGRAM
     Route: 065
     Dates: start: 20190507
  4. BINIMETINIB [Suspect]
     Active Substance: BINIMETINIB
     Indication: METASTATIC MALIGNANT MELANOMA
     Dosage: 90 MILLIGRAM
     Route: 065
     Dates: start: 20190507
  5. TOZINAMERAN. [Suspect]
     Active Substance: TOZINAMERAN
     Indication: PROPHYLAXIS
     Dosage: SINGLE INFECTION (2) 2 DOSES
     Route: 030
     Dates: start: 20210420, end: 20210517
  6. VALSARTAN. [Concomitant]
     Active Substance: VALSARTAN
     Indication: HYPERTENSION
     Dosage: UNK, QD
     Route: 048
     Dates: end: 20210522
  7. IPILIMUMAB [Suspect]
     Active Substance: IPILIMUMAB
     Indication: METASTATIC MALIGNANT MELANOMA
     Dosage: 1 MILLIGRAM/KILOGRAM
     Route: 065
     Dates: start: 20190805

REACTIONS (1)
  - Hypotension [Recovered/Resolved]

NARRATIVE: CASE EVENT DATE: 20210522
